FAERS Safety Report 6554175-9 (Version None)
Quarter: 2010Q1

REPORT INFORMATION
  Report Type: 
  Country: None (occurrence: None)
  Receive Date: 20100127
  Receipt Date: 20100114
  Transmission Date: 20100710
  Serious: Yes (Death)
  Sender: FDA-Public Use
  Company Number: GT-ELI_LILLY_AND_COMPANY-GT201001005303

PATIENT
  Age: 20 Year
  Sex: Male

DRUGS (1)
  1. GEMZAR [Suspect]
     Indication: BONE SARCOMA
     Dosage: 1 G, WEEKLY (1/W)
     Dates: start: 20091201

REACTIONS (2)
  - DEATH [None]
  - OFF LABEL USE [None]
